FAERS Safety Report 4630432-8 (Version None)
Quarter: 2005Q2

REPORT INFORMATION
  Report Type: 
  Country: None (occurrence: None)
  Receive Date: 20050406
  Receipt Date: 20050328
  Transmission Date: 20051028
  Serious: Yes (Disabling, Other)
  Sender: FDA-Public Use
  Company Number: 2005050481

PATIENT
  Age: 52 Year
  Sex: Male
  Weight: 90.7194 kg

DRUGS (2)
  1. VISINE (TETRYZOLINE) [Suspect]
     Indication: OCULAR HYPERAEMIA
     Dosage: 2 DROPS ONCE OPTHALAMIC
     Route: 047
     Dates: start: 20050324, end: 20050324
  2. VERAPAMIL [Concomitant]

REACTIONS (3)
  - EYE DISCHARGE [None]
  - EYE PAIN [None]
  - VISUAL DISTURBANCE [None]
